FAERS Safety Report 10944480 (Version 1)
Quarter: 2015Q1

REPORT INFORMATION
  Report Type: Spontaneous
  Country: GB (occurrence: None)
  Receive Date: 20150318
  Receipt Date: 20150318
  Transmission Date: 20150721
  Serious: Yes (Hospitalization, Other)
  Sender: FDA-Public Use
  Company Number: CL-617-2015

PATIENT
  Age: 30 Year
  Sex: Female

DRUGS (1)
  1. LEVOFLOXACIN UNK [Suspect]
     Active Substance: LEVOFLOXACIN

REACTIONS (4)
  - Vaginal haemorrhage [None]
  - Stevens-Johnson syndrome [None]
  - Vanishing bile duct syndrome [None]
  - Hepatic failure [None]
